FAERS Safety Report 10648739 (Version 2)
Quarter: 2015Q1

REPORT INFORMATION
  Report Type: Spontaneous
  Country: US (occurrence: US)
  Receive Date: 20141212
  Receipt Date: 20150213
  Transmission Date: 20150720
  Serious: No
  Sender: FDA-Public Use
  Company Number: US-PFIZER INC-2014337125

PATIENT
  Age: 64 Year
  Sex: Female
  Weight: 91 kg

DRUGS (2)
  1. ADVIL [Suspect]
     Active Substance: IBUPROFEN
     Indication: ARTHRALGIA
     Dosage: 2 TABLETS, ONCE A DAY
     Dates: start: 20141204, end: 201412
  2. ADVIL [Suspect]
     Active Substance: IBUPROFEN
     Dosage: 400 MG, AS NEEDED (2 TABS (200 MG) ONCE A DAY AS NEEDED, SOME DAYS NONE, SOME DAYS TWICE)

REACTIONS (3)
  - Joint swelling [Recovered/Resolved]
  - Peripheral swelling [Recovered/Resolved]
  - Product formulation issue [Recovered/Resolved]

NARRATIVE: CASE EVENT DATE: 20141204
